FAERS Safety Report 6064154-6 (Version None)
Quarter: 2009Q1

REPORT INFORMATION
  Report Type: 
  Country: None (occurrence: None)
  Receive Date: 20090204
  Receipt Date: 20090119
  Transmission Date: 20090719
  Serious: Yes (Other)
  Sender: FDA-Public Use
  Company Number: US-BAYER-200911512NA

PATIENT
  Sex: Female

DRUGS (2)
  1. MIRENA [Suspect]
     Indication: DRUG USE FOR UNKNOWN INDICATION
     Route: 015
     Dates: start: 20090115
  2. B/P MED NOS [Concomitant]

REACTIONS (5)
  - ABDOMINAL PAIN [None]
  - HYPERTENSION [None]
  - INFECTION [None]
  - MENOMETRORRHAGIA [None]
  - VAGINAL DISCHARGE [None]
